FAERS Safety Report 25676295 (Version 1)
Quarter: 2025Q3

REPORT INFORMATION
  Report Type: Spontaneous
  Country: US (occurrence: US)
  Receive Date: 20250813
  Receipt Date: 20250813
  Transmission Date: 20251021
  Serious: No
  Sender: MALLINCKRODT
  Company Number: US-MALLINCKRODT-MNK202504931

PATIENT
  Sex: Female

DRUGS (13)
  1. CORTICOTROPIN [Suspect]
     Active Substance: CORTICOTROPIN
     Indication: Punctate keratitis
     Route: 058
  2. ALLOPURINOL [Concomitant]
     Active Substance: ALLOPURINOL
  3. ERYTHROMYCIN [Concomitant]
     Active Substance: ERYTHROMYCIN
  4. FAMOTIDINE [Concomitant]
     Active Substance: FAMOTIDINE
  5. FLUTICASONE [Concomitant]
     Active Substance: FLUTICASONE
  6. LEVOTHYROXINE [Concomitant]
     Active Substance: LEVOTHYROXINE
  7. MAGNESIUM [Concomitant]
     Active Substance: MAGNESIUM
  8. MIRTAZAPINE [Concomitant]
     Active Substance: MIRTAZAPINE
  9. OFLOXACIN [Concomitant]
     Active Substance: OFLOXACIN
  10. PREDNISOLONE [Concomitant]
     Active Substance: PREDNISOLONE
  11. PROPRANOLOL [Concomitant]
     Active Substance: PROPRANOLOL HYDROCHLORIDE
  12. SUMATRIPTAN [Concomitant]
     Active Substance: SUMATRIPTAN
  13. SYMBICORT [Concomitant]
     Active Substance: BUDESONIDE\FORMOTEROL FUMARATE DIHYDRATE

REACTIONS (1)
  - Alopecia [Not Recovered/Not Resolved]
